FAERS Safety Report 4545861-0 (Version None)
Quarter: 2005Q1

REPORT INFORMATION
  Report Type: 
  Country: None (occurrence: None)
  Receive Date: 20050103
  Receipt Date: 20041221
  Transmission Date: 20050727
  Serious: Yes (Other)
  Sender: FDA-Public Use
  Company Number: 2004118827

PATIENT
  Age: 63 Year
  Sex: Male
  Weight: 104.3273 kg

DRUGS (4)
  1. CELEBREX [Suspect]
     Indication: ARTHRITIS
     Dosage: 400 MG (200 MG, 2 IN 1 D), ORAL
     Route: 048
     Dates: start: 20030101, end: 20041201
  2. ANTIHYPERTENSIVES (ANTIHYPERTENSIVES) [Concomitant]
  3. ALLEGRA-D [Concomitant]
  4. MONTELUKAST SODIUM               (MONTELUKAST SODIUM) [Concomitant]

REACTIONS (2)
  - OCULAR VASCULAR DISORDER [None]
  - VISUAL DISTURBANCE [None]
